FAERS Safety Report 6343784-8 (Version None)
Quarter: 2009Q3

REPORT INFORMATION
  Report Type: 
  Country: None (occurrence: None)
  Receive Date: 20090908
  Receipt Date: 20090828
  Transmission Date: 20100115
  Serious: Yes (Other)
  Sender: FDA-Public Use
  Company Number: B0590817A

PATIENT
  Sex: Male

DRUGS (2)
  1. PAXIL [Suspect]
     Indication: BIPOLAR I DISORDER
     Route: 048
     Dates: start: 20090418, end: 20090820
  2. PAXIL [Suspect]
     Dosage: 10MG PER DAY
     Route: 048
     Dates: start: 20090801

REACTIONS (7)
  - AGGRESSION [None]
  - ANOSOGNOSIA [None]
  - DRUG WITHDRAWAL SYNDROME [None]
  - FEELING COLD [None]
  - HEAD DISCOMFORT [None]
  - MOOD ALTERED [None]
  - THINKING ABNORMAL [None]
